FAERS Safety Report 9777980 (Version 2)
Quarter: 2014Q1

REPORT INFORMATION
  Report Type: Spontaneous
  Country: FR (occurrence: FR)
  Receive Date: 20131223
  Receipt Date: 20140124
  Transmission Date: 20141002
  Serious: Yes (Hospitalization, Other)
  Sender: FDA-Public Use
  Company Number: FR-AMGEN-FRASP2013089467

PATIENT
  Age: 76 Year
  Sex: Female

DRUGS (6)
  1. ENBREL [Suspect]
     Indication: RHEUMATOID ARTHRITIS
     Dosage: 50 MG, WEEKLY
     Route: 058
     Dates: start: 201001, end: 201311
  2. COTAREG [Concomitant]
     Dosage: UNK
  3. COLCHIMAX                          /00728901/ [Concomitant]
     Dosage: UNK
  4. DEROXAT [Concomitant]
     Dosage: UNK
  5. BROMAZEPAM [Concomitant]
     Dosage: UNK
  6. ZOLPIDEM [Concomitant]
     Dosage: UNK

REACTIONS (1)
  - Myelofibrosis [Not Recovered/Not Resolved]
